FAERS Safety Report 6899192-4 (Version None)
Quarter: 2010Q3

REPORT INFORMATION
  Report Type: 
  Country: None (occurrence: None)
  Receive Date: 20100802
  Receipt Date: 20080128
  Transmission Date: 20110219
  Serious: No
  Sender: FDA-Public Use
  Company Number: US-PFIZER INC-2007082559

PATIENT
  Age: 37 Year
  Sex: Female
  Weight: 73.48 kg

DRUGS (6)
  1. LYRICA [Suspect]
     Indication: FIBROMYALGIA
     Dates: start: 20070917, end: 20070926
  2. EFFEXOR [Concomitant]
  3. TRAZODONE [Concomitant]
  4. DILANTIN [Concomitant]
     Indication: CONVULSION
  5. ATENOLOL [Concomitant]
  6. SOMA [Concomitant]

REACTIONS (3)
  - AFFECT LABILITY [None]
  - DRUG INEFFECTIVE [None]
  - MOOD SWINGS [None]
